FAERS Safety Report 5982543-2 (Version None)
Quarter: 2008Q4

REPORT INFORMATION
  Report Type: 
  Country: None (occurrence: None)
  Receive Date: 20081208
  Receipt Date: 20081126
  Transmission Date: 20090506
  Serious: No
  Sender: FDA-Public Use
  Company Number: PHHY2008PT29790

PATIENT

DRUGS (1)
  1. ACLASTA [Suspect]
     Indication: OSTEITIS DEFORMANS
     Route: 042

REACTIONS (1)
  - HYPOCALCAEMIA [None]
